FAERS Safety Report 8888203 (Version 1)
Quarter: 2012Q4

REPORT INFORMATION
  Report Type: 
  Country: IT (occurrence: IT)
  Receive Date: 20121106
  Receipt Date: 20121106
  Transmission Date: 20130627
  Serious: Yes (Disabling)
  Sender: FDA-Public Use
  Company Number: IT-NOVOPROD-363011

PATIENT
  Age: 66 Year
  Sex: Male

DRUGS (2)
  1. VICTOZA [Suspect]
     Indication: TYPE 2 DIABETES MELLITUS
     Dosage: 1.8 mg/die
     Route: 065
     Dates: start: 20101025, end: 20120808
  2. GLUCOPHAGE [Concomitant]
     Dosage: 2000 mg, qd
     Dates: start: 20061020, end: 20120808

REACTIONS (1)
  - Pancreatic carcinoma [Not Recovered/Not Resolved]
